FAERS Safety Report 8166085 (Version 2)
Quarter: 2012Q4

REPORT INFORMATION
  Report Type: 
  Country: US (occurrence: US)
  Receive Date: 20111003
  Receipt Date: 20121018
  Transmission Date: 20130627
  Serious: Yes (Disabling)
  Sender: FDA-Public Use
  Company Number: US-ASTRAZENECA-2011SE22776

PATIENT
  Age: 43 Year
  Sex: Male

DRUGS (1)
  1. NEXIUM [Suspect]
     Route: 048

REACTIONS (3)
  - Muscle rupture [Recovering/Resolving]
  - Tendon rupture [Unknown]
  - Limb injury [Unknown]
